FAERS Safety Report 23235906 (Version 3)
Quarter: 2025Q1

REPORT INFORMATION
  Report Type: Spontaneous
  Country: US (occurrence: US)
  Receive Date: 20231128
  Receipt Date: 20250106
  Transmission Date: 20250409
  Serious: No
  Sender: PFIZER
  Company Number: US-PFIZER INC-PV202300116296

PATIENT
  Age: 82 Year
  Sex: Male
  Weight: 79.456 kg

DRUGS (3)
  1. XALKORI [Suspect]
     Active Substance: CRIZOTINIB
     Indication: Lung neoplasm malignant
     Dosage: 250 MG, 2X/DAY
     Route: 048
     Dates: start: 20221214
  2. XALKORI [Suspect]
     Active Substance: CRIZOTINIB
     Indication: Metastases to liver
     Dosage: 250 MG, 1X/DAY
     Route: 048
     Dates: start: 20231227
  3. XALKORI [Suspect]
     Active Substance: CRIZOTINIB
     Indication: Biliary cancer metastatic
     Dosage: 250 MG, 1X/DAY
     Route: 048

REACTIONS (1)
  - Blood creatinine increased [Unknown]
